FAERS Safety Report 21265547 (Version 1)
Quarter: 2022Q3

REPORT INFORMATION
  Report Type: Spontaneous
  Country: US (occurrence: None)
  Receive Date: 20220827
  Receipt Date: 20220827
  Transmission Date: 20221027
  Serious: Yes (Life-Threatening, Hospitalization)
  Sender: FDA-Public Use
  Company Number: None

PATIENT
  Age: 55 Year
  Sex: Female
  Weight: 108 kg

DRUGS (13)
  1. OXCARBAZEPINE [Suspect]
     Active Substance: OXCARBAZEPINE
     Indication: Bipolar disorder
     Dosage: OTHER QUANTITY : 4 TABLET(S);?FREQUENCY : AT BEDTIME;?
     Route: 048
     Dates: start: 20180601, end: 20210903
  2. EFFEXOR [Concomitant]
     Active Substance: VENLAFAXINE HYDROCHLORIDE
  3. WELLBUTRIN [Concomitant]
     Active Substance: BUPROPION HYDROCHLORIDE
  4. XANAX [Concomitant]
     Active Substance: ALPRAZOLAM
  5. PROPRANOLOL [Concomitant]
     Active Substance: PROPRANOLOL HYDROCHLORIDE
  6. METFORMIN [Concomitant]
     Active Substance: METFORMIN HYDROCHLORIDE
  7. BUPRENORPHINE [Concomitant]
     Active Substance: BUPRENORPHINE
  8. HYDROCODONE [Concomitant]
     Active Substance: HYDROCODONE
  9. Vitamins C + D [Concomitant]
  10. Multi vitamin for women [Concomitant]
  11. FISH OIL [Concomitant]
     Active Substance: FISH OIL
  12. BIOTIN [Concomitant]
     Active Substance: BIOTIN
  13. VITAMIN B COMPLEX [Concomitant]
     Active Substance: CYANOCOBALAMIN\DEXPANTHENOL\NIACINAMIDE\PYRIDOXINE HYDROCHLORIDE\RIBOFLAVIN 5^-PHOSPHATE SODIUM\THIA

REACTIONS (7)
  - Hyponatraemia [None]
  - Blood potassium abnormal [None]
  - Joint swelling [None]
  - Peripheral swelling [None]
  - Pruritus [None]
  - Disorientation [None]
  - Brain oedema [None]

NARRATIVE: CASE EVENT DATE: 20210903
